FAERS Safety Report 17235864 (Version 2)
Quarter: 2020Q1

REPORT INFORMATION
  Report Type: Report from Study
  Country: None (occurrence: CO)
  Receive Date: 20200106
  Receipt Date: 20200116
  Transmission Date: 20200409
  Serious: Yes (Hospitalization)
  Sender: FDA-Public Use
  Company Number: CO-ABBVIE-20K-036-3220088-00

PATIENT
  Age: 41 Year
  Sex: Female

DRUGS (2)
  1. ZEMPLAR [Suspect]
     Active Substance: PARICALCITOL
     Indication: CHRONIC KIDNEY DISEASE
  2. ZEMPLAR [Suspect]
     Active Substance: PARICALCITOL
     Indication: HYPERPARATHYROIDISM SECONDARY
     Route: 042
     Dates: start: 20160128, end: 20191220

REACTIONS (3)
  - Catheter site infection [Recovered/Resolved]
  - Haemodialysis [Recovered/Resolved]
  - Pulmonary pain [Unknown]

NARRATIVE: CASE EVENT DATE: 20191230
